FAERS Safety Report 16825858 (Version 1)
Quarter: 2019Q3

REPORT INFORMATION
  Report Type: Spontaneous
  Country: CA (occurrence: CA)
  Receive Date: 20190919
  Receipt Date: 20190919
  Transmission Date: 20191005
  Serious: Yes (Hospitalization, Other)
  Sender: FDA-Public Use
  Company Number: CA-MACLEODS PHARMACEUTICALS US LTD-MAC2018014361

PATIENT

DRUGS (11)
  1. SERTRALINE [Suspect]
     Active Substance: SERTRALINE HYDROCHLORIDE
     Dosage: 100 MILLIGRAM, QD
     Route: 064
  2. LAMOTRIGINE. [Suspect]
     Active Substance: LAMOTRIGINE
     Indication: PRODUCT USED FOR UNKNOWN INDICATION
     Dosage: 250 MILLIGRAM, QD
     Route: 064
  3. PARACETAMOL/CODEINE [Concomitant]
     Active Substance: ACETAMINOPHEN\CODEINE PHOSPHATE
     Indication: PRODUCT USED FOR UNKNOWN INDICATION
     Dosage: UNK, TAKEN ONLY ON THE FIRST POSTPARTUM DAYS
     Route: 065
  4. SERTRALINE [Suspect]
     Active Substance: SERTRALINE HYDROCHLORIDE
     Indication: PRODUCT USED FOR UNKNOWN INDICATION
     Dosage: 100 MILLIGRAM, QD
     Route: 063
  5. LEVOTHYROXINE. [Concomitant]
     Active Substance: LEVOTHYROXINE
     Indication: PRODUCT USED FOR UNKNOWN INDICATION
     Dosage: 50 MICROGRAM, QD
     Route: 065
  6. NAPROXEN. [Concomitant]
     Active Substance: NAPROXEN
     Indication: PRODUCT USED FOR UNKNOWN INDICATION
     Dosage: UNK, TAKEN ONLY ON THE FIRST POSTPARTUM DAYS
     Route: 065
  7. ARIPIPRAZOLE. [Suspect]
     Active Substance: ARIPIPRAZOLE
     Dosage: 15 MILLIGRAM, QD
     Route: 063
  8. LAMOTRIGINE. [Suspect]
     Active Substance: LAMOTRIGINE
     Dosage: 250 MILLIGRAM, QD
     Route: 063
  9. DOCUSATE [Concomitant]
     Active Substance: DOCUSATE
     Indication: PRODUCT USED FOR UNKNOWN INDICATION
     Dosage: UNK, TAKEN ONLY ON THE FIRST POSTPARTUM DAYS
     Route: 065
  10. ARIPIPRAZOLE. [Suspect]
     Active Substance: ARIPIPRAZOLE
     Indication: PRODUCT USED FOR UNKNOWN INDICATION
     Dosage: 15 MILLIGRAM, QD
     Route: 064
  11. FOLIC ACID. [Concomitant]
     Active Substance: FOLIC ACID
     Indication: PRODUCT USED FOR UNKNOWN INDICATION
     Dosage: UNK
     Route: 065

REACTIONS (37)
  - Foetal exposure during pregnancy [Unknown]
  - Pallor [Recovered/Resolved]
  - Blood lactate dehydrogenase abnormal [Unknown]
  - Acidosis [Unknown]
  - Heart rate increased [Recovered/Resolved]
  - Respiratory rate increased [Recovered/Resolved]
  - Dehydration [Recovered/Resolved]
  - Hypovolaemic shock [Recovered/Resolved]
  - Acute kidney injury [Recovered/Resolved]
  - Disseminated intravascular coagulation in newborn [Unknown]
  - Blood urea abnormal [Recovered/Resolved]
  - Hypoperfusion [Recovered/Resolved]
  - Peripheral artery thrombosis [Recovered/Resolved]
  - Hypernatraemia [Recovered/Resolved]
  - International normalised ratio decreased [Unknown]
  - Necrosis [Unknown]
  - Gross motor delay [Unknown]
  - Partial seizures [Unknown]
  - White blood cell count increased [Recovered/Resolved]
  - Hyponatraemia [Recovered/Resolved]
  - Blood bicarbonate abnormal [Unknown]
  - Blood fibrinogen decreased [Unknown]
  - Prothrombin time prolonged [Unknown]
  - Blood pH abnormal [Unknown]
  - Irritability [Recovered/Resolved]
  - Somnolence [Recovered/Resolved]
  - PCO2 abnormal [Unknown]
  - Alanine aminotransferase increased [Unknown]
  - Rhabdomyolysis [Unknown]
  - Blood glucose increased [Unknown]
  - Gangrene neonatal [Recovered/Resolved]
  - Skin turgor decreased [Recovered/Resolved]
  - Mucosal dryness [Recovered/Resolved]
  - Exposure via breast milk [Unknown]
  - Hypotension [Recovered/Resolved]
  - Livedo reticularis [Recovered/Resolved]
  - Blood creatinine increased [Recovered/Resolved]

NARRATIVE: CASE EVENT DATE: 2013
